FAERS Safety Report 14396510 (Version 1)
Quarter: 2018Q1

REPORT INFORMATION
  Report Type: Spontaneous
  Country: US (occurrence: US)
  Receive Date: 20180116
  Receipt Date: 20180116
  Transmission Date: 20180509
  Serious: No
  Sender: FDA-Public Use
  Company Number: US-ALLERGAN-1725839US

PATIENT

DRUGS (1)
  1. BOTOX [Suspect]
     Active Substance: ONABOTULINUMTOXINA
     Indication: HYPERHIDROSIS
     Dosage: UNK, SINGLE
     Route: 023

REACTIONS (4)
  - Neuralgia [Unknown]
  - Vasodilatation [Unknown]
  - Tenderness [Unknown]
  - Pain in extremity [Unknown]
